FAERS Safety Report 7350200 (Version 2)
Quarter: 2014Q3

REPORT INFORMATION
  Report Type: Report from Study
  Country: IT (occurrence: IT)
  Receive Date: 20100409
  Receipt Date: 20140731
  Transmission Date: 20150326
  Serious: Yes (Death, Other)
  Sender: FDA-Public Use
  Company Number: IT-CELGENEUS-083-20785-10040350

PATIENT

DRUGS (6)
  1. THALIDOMIDE [Suspect]
     Active Substance: THALIDOMIDE
     Dosage: 150 MILLIGRAM
     Route: 048
  2. THALIDOMIDE [Suspect]
     Active Substance: THALIDOMIDE
     Indication: PLASMA CELL MYELOMA
     Dosage: 200 MILLIGRAM
     Route: 048
  3. THALIDOMIDE [Suspect]
     Active Substance: THALIDOMIDE
     Dosage: 100 MILLIGRAM
     Route: 048
  4. THALIDOMIDE [Suspect]
     Active Substance: THALIDOMIDE
     Dosage: 50 MILLIGRAM
     Route: 048
  5. DEXAMETHASONE. [Suspect]
     Active Substance: DEXAMETHASONE
     Indication: PLASMA CELL MYELOMA
     Dosage: 20 MILLIGRAM
     Route: 065
  6. BORTEZOMIB [Suspect]
     Active Substance: BORTEZOMIB
     Indication: PLASMA CELL MYELOMA
     Dosage: 1.6 MILLIGRAM/SQ. METER
     Route: 065

REACTIONS (26)
  - Plasma cell myeloma [Fatal]
  - Death [Fatal]
  - Bronchitis [Unknown]
  - Gastrointestinal disorder [Unknown]
  - Thrombocytopenia [Unknown]
  - Rash [Unknown]
  - Plasma cell myeloma recurrent [Unknown]
  - Infection [Unknown]
  - Dizziness [Unknown]
  - Influenza [Unknown]
  - Constipation [Unknown]
  - Cardiac disorder [Unknown]
  - Herpes zoster [Unknown]
  - Nervous system disorder [Unknown]
  - Mood altered [Unknown]
  - Neutropenia [Unknown]
  - Anaemia [Unknown]
  - Neuralgia [Unknown]
  - Hypotension [Unknown]
  - Fatigue [Unknown]
  - Oedema peripheral [Unknown]
  - Hyperglycaemia [Unknown]
  - Neuropathy peripheral [Unknown]
  - Pneumonia [Unknown]
  - Pyrexia [Unknown]
  - Paraesthesia [Unknown]
